FAERS Safety Report 4503678-7 (Version None)
Quarter: 2004Q4

REPORT INFORMATION
  Report Type: 
  Country: None (occurrence: None)
  Receive Date: 20041115
  Receipt Date: 20041110
  Transmission Date: 20050328
  Serious: Yes (Life-Threatening, Hospitalization)
  Sender: FDA-Public Use
  Company Number: 2004-121637-NL

PATIENT
  Age: 62 Year
  Sex: Female

DRUGS (4)
  1. MIRTAZAPINE [Suspect]
     Indication: DEPRESSION
     Dosage: 15 MG/30MG ORAL
     Route: 048
     Dates: start: 20040909, end: 20040915
  2. MIRTAZAPINE [Suspect]
     Indication: DEPRESSION
     Dosage: 15 MG/30MG ORAL
     Route: 048
     Dates: start: 20040915, end: 20040921
  3. CYAMEMAZINE [Suspect]
     Dosage: 75 MG ORAL
     Route: 048
     Dates: start: 20040920, end: 20040921
  4. LOPRAZOLAM MESILATE [Concomitant]

REACTIONS (4)
  - COMA [None]
  - EPILEPSY [None]
  - HYPONATRAEMIA [None]
  - LUNG DISORDER [None]
